FAERS Safety Report 22986904 (Version 2)
Quarter: 2024Q1

REPORT INFORMATION
  Report Type: Spontaneous
  Country: US (occurrence: US)
  Receive Date: 20230926
  Receipt Date: 20240322
  Transmission Date: 20240409
  Serious: No
  Sender: FDA-Public Use
  Company Number: US-IMPEL PHARMACEUTICALS INC-2023-SPO-TR-0293

PATIENT

DRUGS (3)
  1. TRUDHESA [Suspect]
     Active Substance: DIHYDROERGOTAMINE MESYLATE
     Indication: Migraine
     Dosage: 1.45 MILLIGRAM, SINGLE
     Route: 045
     Dates: start: 2023, end: 2023
  2. SOMATROPIN [Concomitant]
     Active Substance: SOMATROPIN
     Indication: Product used for unknown indication
     Route: 065
  3. VYEPTI [Concomitant]
     Active Substance: EPTINEZUMAB-JJMR
     Indication: Product used for unknown indication
     Route: 065

REACTIONS (6)
  - Hypersensitivity [Unknown]
  - Sneezing [Unknown]
  - Sinus congestion [Unknown]
  - Dyspnoea [Unknown]
  - Nasal congestion [Recovered/Resolved]
  - Wrong technique in product usage process [Unknown]

NARRATIVE: CASE EVENT DATE: 20230101
